FAERS Safety Report 19346546 (Version 1)
Quarter: 2021Q2

REPORT INFORMATION
  Report Type: Spontaneous
  Country: US (occurrence: US)
  Receive Date: 20210528
  Receipt Date: 20210528
  Transmission Date: 20210717
  Serious: Yes (Hospitalization)
  Sender: FDA-Public Use
  Company Number: None

PATIENT
  Age: 31 Year
  Sex: Female
  Weight: 62.9 kg

DRUGS (4)
  1. DEXAMETHASONE. [Suspect]
     Active Substance: DEXAMETHASONE
     Dates: end: 20210515
  2. METHOTREXATE. [Suspect]
     Active Substance: METHOTREXATE
     Dates: end: 20210525
  3. MERCAPTOPURINE. [Suspect]
     Active Substance: MERCAPTOPURINE
     Dates: end: 20210526
  4. VINCRISTINE SULFATE. [Suspect]
     Active Substance: VINCRISTINE SULFATE
     Dates: end: 20210511

REACTIONS (10)
  - Burning sensation [None]
  - Oral mucosal eruption [None]
  - Herpes simplex [None]
  - Immunodeficiency [None]
  - Rash vesicular [None]
  - Scab [None]
  - Skin lesion [None]
  - Cheilitis [None]
  - Rash [None]
  - Loss of therapeutic response [None]

NARRATIVE: CASE EVENT DATE: 20210501
